FAERS Safety Report 5377785-3 (Version None)
Quarter: 2007Q3

REPORT INFORMATION
  Report Type: 
  Country: None (occurrence: None)
  Receive Date: 20070703
  Receipt Date: 20070627
  Transmission Date: 20080115
  Serious: Yes (Hospitalization)
  Sender: FDA-Public Use
  Company Number: US-ABBOTT-07P-163-0373070-00

PATIENT
  Sex: Male
  Weight: 80.812 kg

DRUGS (17)
  1. HUMIRA [Suspect]
     Indication: RHEUMATOID ARTHRITIS
     Dosage: SYRINGE
     Route: 058
     Dates: start: 20060601, end: 20060701
  2. HUMIRA [Suspect]
     Dosage: PEN
     Route: 058
     Dates: start: 20060801
  3. LEUFLONAMIDE [Concomitant]
     Indication: DRUG USE FOR UNKNOWN INDICATION
     Route: 048
  4. FISH OIL [Concomitant]
     Indication: DRUG USE FOR UNKNOWN INDICATION
  5. CALCIUM + D [Concomitant]
     Indication: DRUG USE FOR UNKNOWN INDICATION
  6. ACETYLSALICYLIC ACID SRT [Concomitant]
     Indication: DRUG USE FOR UNKNOWN INDICATION
     Route: 048
  7. CENTRUM SILVER [Concomitant]
     Indication: DRUG USE FOR UNKNOWN INDICATION
  8. GLUCOSAMINE/CHONDROYTIN [Concomitant]
     Indication: DRUG USE FOR UNKNOWN INDICATION
  9. MACARDIS [Concomitant]
     Indication: DRUG USE FOR UNKNOWN INDICATION
  10. ALENDRONATE SODIUM [Concomitant]
     Indication: DRUG USE FOR UNKNOWN INDICATION
  11. OMEPRAZOLE [Concomitant]
     Indication: DRUG USE FOR UNKNOWN INDICATION
  12. FEXOFENADINE [Concomitant]
     Indication: DRUG USE FOR UNKNOWN INDICATION
  13. THEOPHYLLINE [Concomitant]
     Indication: DRUG USE FOR UNKNOWN INDICATION
  14. SERETIDE [Concomitant]
     Indication: DRUG USE FOR UNKNOWN INDICATION
  15. TIOTROPIUM BROMIDE [Concomitant]
     Indication: DRUG USE FOR UNKNOWN INDICATION
  16. DOXAZOSIN MESYLATE [Concomitant]
     Indication: DRUG USE FOR UNKNOWN INDICATION
  17. PREDNISONE TAB [Concomitant]
     Indication: DRUG USE FOR UNKNOWN INDICATION

REACTIONS (2)
  - CORONARY ARTERY BYPASS [None]
  - KNEE ARTHROPLASTY [None]
